FAERS Safety Report 4598092-2 (Version None)
Quarter: 2005Q1

REPORT INFORMATION
  Report Type: 
  Country: None (occurrence: None)
  Receive Date: 20050304
  Receipt Date: 20050223
  Transmission Date: 20050727
  Serious: Yes (Hospitalization)
  Sender: FDA-Public Use
  Company Number: JP-ABBOTT-05P-087-0291937-00

PATIENT
  Age: 86 Year
  Sex: Male

DRUGS (1)
  1. KLARICID [Suspect]
     Indication: DRUG USE FOR UNKNOWN INDICATION
     Route: 048
     Dates: end: 20050218

REACTIONS (3)
  - ABASIA [None]
  - PYREXIA [None]
  - RHABDOMYOLYSIS [None]
